FAERS Safety Report 18078982 (Version 3)
Quarter: 2020Q3

REPORT INFORMATION
  Report Type: Spontaneous
  Country: US (occurrence: US)
  Receive Date: 20200728
  Receipt Date: 20200822
  Transmission Date: 20201103
  Serious: No
  Sender: FDA-Public Use
  Company Number: US-BIOGEN-2020BI00900289

PATIENT
  Sex: Male

DRUGS (3)
  1. BUPROPION. [Concomitant]
     Active Substance: BUPROPION
     Route: 065
  2. TECFIDERA [Suspect]
     Active Substance: DIMETHYL FUMARATE
     Indication: MULTIPLE SCLEROSIS
     Route: 048
     Dates: start: 20200310
  3. BACLOFEN. [Concomitant]
     Active Substance: BACLOFEN
     Route: 065

REACTIONS (4)
  - Rash [Unknown]
  - Flushing [Recovered/Resolved]
  - Mobility decreased [Not Recovered/Not Resolved]
  - Underdose [Unknown]
